FAERS Safety Report 5398095-4 (Version None)
Quarter: 2007Q3

REPORT INFORMATION
  Report Type: 
  Country: None (occurrence: None)
  Receive Date: 20070726
  Receipt Date: 20070717
  Transmission Date: 20080115
  Serious: Yes (Hospitalization, Other)
  Sender: FDA-Public Use
  Company Number: US-PFIZER INC-2006046509

PATIENT
  Sex: Male
  Weight: 74.8 kg

DRUGS (5)
  1. VIAGRA [Suspect]
  2. THORAZINE [Suspect]
     Indication: ILL-DEFINED DISORDER
     Dosage: TEXT:UNKNOWN-FREQ:UNKNOWN
     Route: 065
  3. CHEMOTHERAPY NOS [Suspect]
     Indication: ILL-DEFINED DISORDER
     Dosage: TEXT:UNKNOWN-FREQ:UNKNOWN
     Route: 065
  4. SEROQUEL [Concomitant]
     Route: 065
  5. ALL OTHER THERAPEUTIC PRODUCTS [Concomitant]
     Route: 065

REACTIONS (5)
  - ALOPECIA [None]
  - CHEMOTHERAPY [None]
  - DRUG INEFFECTIVE [None]
  - GASTROINTESTINAL HAEMORRHAGE [None]
  - SKIN DISCOLOURATION [None]
